FAERS Safety Report 18764679 (Version 2)
Quarter: 2021Q1

REPORT INFORMATION
  Report Type: Report from Study
  Country: US (occurrence: US)
  Receive Date: 20210120
  Receipt Date: 20210222
  Transmission Date: 20210419
  Serious: Yes (Other)
  Sender: FDA-Public Use
  Company Number: US-SHIRE-US201941178

PATIENT
  Sex: Female

DRUGS (4)
  1. HUMAN NORMAL IMMUNOGLOBULIN; LIQUID [Suspect]
     Active Substance: HUMAN IMMUNOGLOBULIN G
     Dosage: 30 GRAM, 1X A MONTH
     Route: 042
     Dates: start: 201908
  2. GAMMAGARD S/D [Suspect]
     Active Substance: HUMAN IMMUNOGLOBULIN G
     Indication: IMMUNODEFICIENCY COMMON VARIABLE
     Route: 065
  3. HUMAN NORMAL IMMUNOGLOBULIN; LIQUID [Suspect]
     Active Substance: HUMAN IMMUNOGLOBULIN G
     Indication: IMMUNODEFICIENCY COMMON VARIABLE
     Dosage: 30 GRAM, 1X A MONTH
     Route: 042
     Dates: end: 201905
  4. GAMMAGARD S/D [Suspect]
     Active Substance: HUMAN IMMUNOGLOBULIN G
     Indication: IMMUNODEFICIENCY COMMON VARIABLE
     Route: 065

REACTIONS (14)
  - Arthritis [Unknown]
  - Adrenal insufficiency [Unknown]
  - Arthralgia [Unknown]
  - Pyrexia [Recovered/Resolved]
  - Cyst [Unknown]
  - Sinusitis [Unknown]
  - Product administration interrupted [Unknown]
  - Ligament sprain [Unknown]
  - Fall [Unknown]
  - Upper respiratory tract infection [Unknown]
  - Inappropriate schedule of product administration [Unknown]
  - Pulmonary hypertension [Unknown]
  - Product supply issue [Unknown]
  - Asthma [Unknown]
